FAERS Safety Report 7917041-X (Version None)
Quarter: 2011Q4

REPORT INFORMATION
  Report Type: 
  Country: None (occurrence: None)
  Receive Date: 20111114
  Receipt Date: 20111029
  Transmission Date: 20120403
  Serious: Yes (Other)
  Sender: FDA-Public Use
  Company Number: 2011AP002523

PATIENT
  Age: 41 Year
  Sex: Female

DRUGS (13)
  1. HALOPERIDOL DECANOATE [Suspect]
     Indication: SCHIZOPHRENIA, PARANOID TYPE
     Dosage: IM
     Route: 030
     Dates: start: 20010101
  2. RISPERIDONE [Suspect]
     Indication: SCHIZOPHRENIA, PARANOID TYPE
     Dosage: 4 MG; 2 MG; 4 MG; 6 MG; 10 MG
     Dates: start: 20040101, end: 20070101
  3. RISPERIDONE [Suspect]
     Indication: SCHIZOPHRENIA, PARANOID TYPE
     Dosage: 4 MG; 2 MG; 4 MG; 6 MG; 10 MG
     Dates: start: 20090101
  4. RISPERIDONE [Suspect]
     Indication: SCHIZOPHRENIA, PARANOID TYPE
     Dosage: 4 MG; 2 MG; 4 MG; 6 MG; 10 MG
     Dates: start: 20020101
  5. RISPERIDONE [Suspect]
     Indication: SCHIZOPHRENIA, PARANOID TYPE
     Dosage: 4 MG; 2 MG; 4 MG; 6 MG; 10 MG
     Dates: start: 20010101
  6. RISPERIDONE [Suspect]
     Indication: SCHIZOPHRENIA, PARANOID TYPE
     Dosage: 4 MG; 2 MG; 4 MG; 6 MG; 10 MG
     Dates: start: 20010101
  7. CLOZAPINE [Suspect]
     Indication: SCHIZOPHRENIA, PARANOID TYPE
     Dosage: 600 MG; 400 MG
     Dates: start: 20020101
  8. CLOZAPINE [Suspect]
     Indication: SCHIZOPHRENIA, PARANOID TYPE
     Dosage: 600 MG; 400 MG
     Dates: start: 20020101
  9. CLOZAPINE [Suspect]
     Indication: SCHIZOPHRENIA, PARANOID TYPE
     Dosage: 600 MG; 400 MG
     Dates: start: 20080101, end: 20090101
  10. CLOZAPINE [Suspect]
     Indication: SCHIZOPHRENIA, PARANOID TYPE
     Dosage: 600 MG; 400 MG
     Dates: start: 20040101
  11. LAMOTRIGINE [Suspect]
     Indication: SCHIZOPHRENIA, PARANOID TYPE
     Dosage: 150 MG;QD, 250 MG;QD
     Dates: start: 20070101
  12. LAMOTRIGINE [Suspect]
     Indication: SCHIZOPHRENIA, PARANOID TYPE
     Dosage: 150 MG;QD, 250 MG;QD
     Dates: start: 20090101, end: 20090101
  13. LAMOTRIGINE [Suspect]
     Indication: SCHIZOPHRENIA, PARANOID TYPE
     Dosage: 150 MG;QD, 250 MG;QD
     Dates: start: 20070101

REACTIONS (6)
  - AGRANULOCYTOSIS [None]
  - NEUTROPHIL COUNT DECREASED [None]
  - WITHDRAWAL SYNDROME [None]
  - SEDATION [None]
  - PSYCHOTIC DISORDER [None]
  - EXTRAPYRAMIDAL DISORDER [None]
